FAERS Safety Report 5473383-1 (Version None)
Quarter: 2007Q3

REPORT INFORMATION
  Report Type: 
  Country: None (occurrence: None)
  Receive Date: 20070824
  Receipt Date: 20070524
  Transmission Date: 20080115
  Serious: Yes (Life-Threatening, Hospitalization, Disabling)
  Sender: FDA-Public Use
  Company Number: WAES 0705USA04981

PATIENT
  Sex: Male

DRUGS (1)
  1. VYTORIN [Suspect]
     Indication: BLOOD CHOLESTEROL
     Dosage: 10-80 MG/PO
     Route: 048
     Dates: start: 20070101, end: 20070501

REACTIONS (1)
  - BLOOD CREATINE PHOSPHOKINASE INCREASED [None]
